FAERS Safety Report 10193047 (Version 2)
Quarter: 2014Q2

REPORT INFORMATION
  Report Type: Report from Study
  Country: AU (occurrence: AU)
  Receive Date: 20140524
  Receipt Date: 20140529
  Transmission Date: 20141212
  Serious: Yes (Death, Other)
  Sender: FDA-Public Use
  Company Number: AU-AMGEN INC.-AUSCT2014037968

PATIENT
  Age: 30 Year
  Sex: Male

DRUGS (3)
  1. ETANERCEPT [Suspect]
     Indication: PSORIASIS
     Dosage: UNK
     Route: 065
  2. METHOTREXATE SODIUM [Concomitant]
     Dosage: WEEKLY, 2 YEARS PRIOR TO PRESENTATION
     Route: 065
  3. CYCLOSPORINE [Concomitant]
     Indication: PSORIASIS
     Dosage: UNK
     Route: 065

REACTIONS (1)
  - Hepatosplenic T-cell lymphoma [Fatal]
